FAERS Safety Report 6197097-8 (Version None)
Quarter: 2009Q2

REPORT INFORMATION
  Report Type: 
  Country: None (occurrence: None)
  Receive Date: 20090518
  Receipt Date: 20090518
  Transmission Date: 20091009
  Serious: Yes (Life-Threatening)
  Sender: FDA-Public Use
  Company Number: None

PATIENT
  Age: 57 Year
  Sex: Female
  Weight: 55.3388 kg

DRUGS (1)
  1. LEVAQUIN [Suspect]
     Dosage: 500 MG 1 TIME PER DAY IN
     Dates: start: 20090428, end: 20090504

REACTIONS (2)
  - ARTHRALGIA [None]
  - TENDON PAIN [None]
